FAERS Safety Report 16893044 (Version 3)
Quarter: 2019Q4

REPORT INFORMATION
  Report Type: Spontaneous
  Country: RU (occurrence: RU)
  Receive Date: 20191008
  Receipt Date: 20191210
  Transmission Date: 20200122
  Serious: Yes (Other)
  Sender: FDA-Public Use
  Company Number: RU-ALEXION-A201915357

PATIENT
  Age: 2 Year
  Sex: Male

DRUGS (4)
  1. SOLIRIS [Suspect]
     Active Substance: ECULIZUMAB
     Dosage: UNK
     Route: 065
     Dates: start: 201902
  2. SOLIRIS [Suspect]
     Active Substance: ECULIZUMAB
     Dosage: UNK
     Route: 065
     Dates: end: 201710
  3. SOLIRIS [Suspect]
     Active Substance: ECULIZUMAB
     Dosage: 300 MG, Q2W
     Route: 065
     Dates: end: 20160510
  4. SOLIRIS [Suspect]
     Active Substance: ECULIZUMAB
     Indication: ATYPICAL HAEMOLYTIC URAEMIC SYNDROME
     Dosage: 300 MG, QW THREE TIMES
     Route: 065
     Dates: start: 20160430, end: 20161005

REACTIONS (24)
  - Platelet count decreased [Unknown]
  - Blood creatinine increased [Unknown]
  - Renal disorder [Unknown]
  - Hypoproteinaemia [Unknown]
  - Haemoglobin decreased [Unknown]
  - Thrombocytopenia [Recovered/Resolved]
  - Atypical haemolytic uraemic syndrome [Recovered/Resolved]
  - Acute kidney injury [Recovered/Resolved]
  - Hypertension [Recovered/Resolved]
  - Microangiopathic haemolytic anaemia [Recovered/Resolved]
  - Blood bilirubin increased [Unknown]
  - Protein urine present [Unknown]
  - Blood lactate dehydrogenase increased [Unknown]
  - Prothrombin level decreased [Unknown]
  - Aspartate aminotransferase increased [Unknown]
  - Blood urea increased [Unknown]
  - Kidney enlargement [Unknown]
  - Proteinuria [Unknown]
  - Blood fibrinogen decreased [Unknown]
  - Complement factor C3 increased [Unknown]
  - Protein total decreased [Unknown]
  - Complement factor C3 decreased [Unknown]
  - Haptoglobin increased [Unknown]
  - Haematuria [Unknown]

NARRATIVE: CASE EVENT DATE: 20170306
